FAERS Safety Report 10186196 (Version 2)
Quarter: 2014Q3

REPORT INFORMATION
  Report Type: Spontaneous
  Country: US (occurrence: US)
  Receive Date: 20140521
  Receipt Date: 20140721
  Transmission Date: 20150326
  Serious: Yes (Other)
  Sender: FDA-Public Use
  Company Number: US-GLAXOSMITHKLINE-A1074011A

PATIENT
  Age: 40 Year
  Sex: Female

DRUGS (5)
  1. LAMICTAL XR [Suspect]
     Active Substance: LAMOTRIGINE
     Indication: PARTIAL SEIZURES
     Dosage: 300MG PER DAY
     Route: 065
     Dates: start: 20131119
  2. FOLIC ACID. [Concomitant]
     Active Substance: FOLIC ACID
     Dosage: 2MG IN THE MORNING
     Route: 065
  3. FELBATOL [Suspect]
     Active Substance: FELBAMATE
     Indication: PARTIAL SEIZURES
     Dosage: 600MG FOUR TIMES PER DAY
     Route: 048
  4. CITALOPRAM HYDROBROMIDE. [Concomitant]
     Active Substance: CITALOPRAM HYDROBROMIDE
     Indication: PRODUCT USED FOR UNKNOWN INDICATION
     Dosage: 20MG PER DAY
     Route: 065
  5. BUSPIRONE [Concomitant]
     Active Substance: BUSPIRONE HYDROCHLORIDE
     Indication: PRODUCT USED FOR UNKNOWN INDICATION
     Dosage: 20MG TWICE PER DAY
     Route: 065

REACTIONS (9)
  - Joint injury [Unknown]
  - Carpal tunnel syndrome [Unknown]
  - Arthralgia [Unknown]
  - Convulsion [Recovering/Resolving]
  - Middle insomnia [Unknown]
  - Stress [Unknown]
  - Poor quality sleep [Unknown]
  - Headache [Unknown]
  - Pain in extremity [Unknown]
